FAERS Safety Report 15857824 (Version 1)
Quarter: 2019Q1

REPORT INFORMATION
  Report Type: Spontaneous
  Country: US (occurrence: US)
  Receive Date: 20190123
  Receipt Date: 20190123
  Transmission Date: 20190417
  Serious: No
  Sender: FDA-Public Use
  Company Number: None

PATIENT

DRUGS (1)
  1. ENBREL [Suspect]
     Active Substance: ETANERCEPT
     Dosage: JAN 2019 - PRESENT

REACTIONS (3)
  - Insurance issue [None]
  - Product dose omission [None]
  - Pain [None]

NARRATIVE: CASE EVENT DATE: 20190101
